FAERS Safety Report 14519635 (Version 1)
Quarter: 2018Q1

REPORT INFORMATION
  Report Type: Report from Study
  Country: US (occurrence: US)
  Receive Date: 20180212
  Receipt Date: 20180212
  Transmission Date: 20180509
  Serious: No
  Sender: FDA-Public Use
  Company Number: US-AMAG PHARMACEUTICALS, INC.-AMAG201700514

PATIENT

DRUGS (3)
  1. VITAMINS NOS [Concomitant]
     Active Substance: VITAMINS
  2. MAKENA [Suspect]
     Active Substance: HYDROXYPROGESTERONE CAPROATE
     Indication: PREMATURE LABOUR
     Dosage: 250 MG/ML, WEEKLY
     Route: 030
     Dates: start: 20170111
  3. DICLEGIS [Concomitant]
     Active Substance: DOXYLAMINE SUCCINATE\PYRIDOXINE HYDROCHLORIDE

REACTIONS (7)
  - Paraesthesia [Recovered/Resolved]
  - Blood pressure increased [Recovered/Resolved]
  - Visual impairment [Recovered/Resolved]
  - Migraine [Recovered/Resolved]
  - Increased appetite [Recovered/Resolved]
  - Vomiting [Unknown]
  - Urticaria [Recovered/Resolved]

NARRATIVE: CASE EVENT DATE: 20170127
